FAERS Safety Report 4647650-5 (Version None)
Quarter: 2005Q2

REPORT INFORMATION
  Report Type: 
  Country: None (occurrence: None)
  Receive Date: 20050426
  Receipt Date: 20050413
  Transmission Date: 20051028
  Serious: Yes (Hospitalization, Other)
  Sender: FDA-Public Use
  Company Number: 2005059751

PATIENT
  Age: 71 Year
  Sex: Male
  Weight: 108.8633 kg

DRUGS (7)
  1. BEXTRA [Suspect]
     Indication: ARTHRITIS
     Dosage: 20 MG (20 MG, 1 IN 1D), ORAL
     Route: 048
  2. ACETAMINOPHEN [Concomitant]
  3. FUROSEMIDE [Concomitant]
  4. ANTIHYPERTENSIVES (ANTIHYPERTENSIVES) [Concomitant]
  5. VICODIN [Concomitant]
  6. DRUG, UNSPECIFIED (DRUG, UNSPECIFIED) [Concomitant]
  7. GLUCOSAMINE (GLUCOSAMINE) [Concomitant]

REACTIONS (5)
  - DRUG INEFFECTIVE [None]
  - KNEE ARTHROPLASTY [None]
  - PSYCHOMOTOR HYPERACTIVITY [None]
  - RASH ERYTHEMATOUS [None]
  - SCAB [None]
